FAERS Safety Report 19431112 (Version 1)
Quarter: 2021Q2

REPORT INFORMATION
  Report Type: Spontaneous
  Country: US (occurrence: US)
  Receive Date: 20210618
  Receipt Date: 20210618
  Transmission Date: 20210717
  Serious: No
  Sender: FDA-Public Use
  Company Number: US-ROCHE-2774570

PATIENT
  Sex: Female

DRUGS (41)
  1. ACTEMRA [Suspect]
     Active Substance: TOCILIZUMAB
  2. PLAVIX [Concomitant]
     Active Substance: CLOPIDOGREL BISULFATE
     Route: 065
  3. CLOBETASOL [Concomitant]
     Active Substance: CLOBETASOL
  4. COLACE [Concomitant]
     Active Substance: DOCUSATE SODIUM
     Route: 065
  5. OMEGA 3 FISH OILS [Concomitant]
     Active Substance: OMEGA-3 FATTY ACIDS
     Route: 065
  6. ACTEMRA [Suspect]
     Active Substance: TOCILIZUMAB
     Indication: PRODUCT USED FOR UNKNOWN INDICATION
     Route: 058
     Dates: start: 202010
  7. CALCIUM D [Concomitant]
     Active Substance: CALCIUM\VITAMIN D
     Route: 065
  8. CLINDAMYCIN. [Concomitant]
     Active Substance: CLINDAMYCIN
     Route: 061
  9. VITAMIN B6 [Concomitant]
     Active Substance: PYRIDOXINE HYDROCHLORIDE
     Route: 065
  10. SPIRONOLACTONE. [Concomitant]
     Active Substance: SPIRONOLACTONE
     Route: 065
  11. BUMEX [Concomitant]
     Active Substance: BUMETANIDE
     Route: 065
  12. NITROGLYCERINE [Concomitant]
     Active Substance: NITROGLYCERIN
     Dosage: 400 MCG
     Route: 061
  13. TRULANCE [Concomitant]
     Active Substance: PLECANATIDE
     Route: 065
  14. MIRALAX [Concomitant]
     Active Substance: POLYETHYLENE GLYCOL 3350
     Route: 065
  15. CARAFATE [Concomitant]
     Active Substance: SUCRALFATE
     Indication: OESOPHAGEAL PAIN
     Route: 065
  16. TACROLIMUS. [Concomitant]
     Active Substance: TACROLIMUS
     Route: 065
  17. EPIPEN [Concomitant]
     Active Substance: EPINEPHRINE
  18. VITAMIN C [Concomitant]
     Active Substance: ASCORBIC ACID
     Route: 065
  19. CLOTRIMAZOLE. [Concomitant]
     Active Substance: CLOTRIMAZOLE
     Route: 065
  20. FLEXERIL [Concomitant]
     Active Substance: CYCLOBENZAPRINE HYDROCHLORIDE
     Route: 065
  21. MAGNESIUM OXIDE. [Concomitant]
     Active Substance: MAGNESIUM OXIDE
     Route: 065
  22. MELATONIN [Concomitant]
     Active Substance: MELATONIN
  23. WELLBUTRIN XL [Concomitant]
     Active Substance: BUPROPION HYDROCHLORIDE
     Route: 065
  24. LIPITOR [Concomitant]
     Active Substance: ATORVASTATIN CALCIUM
     Route: 065
  25. SYNTHROID [Concomitant]
     Active Substance: LEVOTHYROXINE SODIUM
     Dosage: 50 MCG
     Route: 065
  26. ZOFRAN [Concomitant]
     Active Substance: ONDANSETRON HYDROCHLORIDE
     Route: 065
  27. ASPIRIN. [Concomitant]
     Active Substance: ASPIRIN
     Route: 065
  28. CICLOPIROX. [Concomitant]
     Active Substance: CICLOPIROX
     Route: 065
  29. ESTRADIOL. [Concomitant]
     Active Substance: ESTRADIOL
  30. METOPROLOL. [Concomitant]
     Active Substance: METOPROLOL
     Route: 065
  31. PROTONIX (UNK INGREDIENTS) [Concomitant]
  32. REFRESH P.M. [Concomitant]
     Active Substance: MINERAL OIL\PETROLATUM
     Route: 047
  33. CRANBERRY. [Concomitant]
     Active Substance: CRANBERRY
     Route: 065
  34. GABAPENTIN. [Concomitant]
     Active Substance: GABAPENTIN
     Route: 065
  35. FAMOTIDINE. [Concomitant]
     Active Substance: FAMOTIDINE
     Route: 065
  36. POTASSIUM CHLORIDE. [Concomitant]
     Active Substance: POTASSIUM CHLORIDE
  37. STELAZINE [Concomitant]
     Active Substance: TRIFLUOPERAZINE HYDROCHLORIDE
     Route: 065
  38. AMMONIUM LACTATE. [Concomitant]
     Active Substance: AMMONIUM LACTATE
     Route: 061
  39. LIDOCAINE. [Concomitant]
     Active Substance: LIDOCAINE
     Route: 065
  40. ELIQUIS [Concomitant]
     Active Substance: APIXABAN
     Route: 048
  41. FLONASE [Concomitant]
     Active Substance: FLUTICASONE PROPIONATE
     Route: 045

REACTIONS (2)
  - Needle issue [Unknown]
  - Visual acuity reduced [Unknown]
